FAERS Safety Report 5592339-1 (Version None)
Quarter: 2007Q4

REPORT INFORMATION
  Report Type: 
  Country: None (occurrence: None)
  Receive Date: 20071217
  Receipt Date: 20071102
  Transmission Date: 20080405
  Serious: No
  Sender: FDA-Public Use
  Company Number: BDI-010502

PATIENT
  Age: 53 Year
  Sex: Female

DRUGS (1)
  1. MULTIHANCE [Suspect]
     Indication: NUCLEAR MAGNETIC RESONANCE IMAGING ABDOMINAL
     Dosage: 20 ML,ONCE,IV
     Route: 042
     Dates: start: 20071027, end: 20071027

REACTIONS (1)
  - HYPERSENSITIVITY [None]
